APPROVED DRUG PRODUCT: PROPAFENONE HYDROCHLORIDE
Active Ingredient: PROPAFENONE HYDROCHLORIDE
Strength: 225MG
Dosage Form/Route: TABLET;ORAL
Application: A202445 | Product #002 | TE Code: AB
Applicant: AUROBINDO PHARMA LTD
Approved: May 11, 2016 | RLD: No | RS: No | Type: RX